FAERS Safety Report 5903768-8 (Version None)
Quarter: 2008Q3

REPORT INFORMATION
  Report Type: 
  Country: None (occurrence: None)
  Receive Date: 20080930
  Receipt Date: 20080917
  Transmission Date: 20090109
  Serious: Yes (Hospitalization, Other)
  Sender: FDA-Public Use
  Company Number: US-ELI_LILLY_AND_COMPANY-US200809004373

PATIENT
  Sex: Male
  Weight: 104.31 kg

DRUGS (9)
  1. BYETTA [Suspect]
     Indication: TYPE 2 DIABETES MELLITUS
     Dosage: 5 UG, 2/D
     Route: 058
     Dates: start: 20070601, end: 20070901
  2. BYETTA [Suspect]
     Dosage: 10 UG, 2/D
     Route: 058
     Dates: start: 20070901, end: 20080827
  3. BYETTA [Suspect]
     Dosage: 10 UG, 2/D
     Route: 058
     Dates: start: 20080903
  4. METFORMIN HCL [Concomitant]
     Indication: TYPE 2 DIABETES MELLITUS
     Dosage: UNK, UNKNOWN
  5. ACTOS [Concomitant]
     Indication: TYPE 2 DIABETES MELLITUS
     Dosage: UNK, UNKNOWN
  6. DEMEROL [Concomitant]
     Dosage: 50 MG, AS NEEDED
     Dates: start: 20080903
  7. DULCOLAX [Concomitant]
     Indication: LAXATIVE SUPPORTIVE CARE
     Dosage: 100 MG, 2/D
  8. PLAVIX [Concomitant]
     Indication: ANTICOAGULANT THERAPY
     Dosage: UNK, UNKNOWN
     Dates: start: 20060101, end: 20070101
  9. ASPIRIN [Concomitant]
     Dosage: UNK, UNKNOWN

REACTIONS (9)
  - ANXIETY [None]
  - BLADDER CANCER [None]
  - BLOOD URINE PRESENT [None]
  - DECREASED APPETITE [None]
  - DYSGEUSIA [None]
  - FLATULENCE [None]
  - NAUSEA [None]
  - SOFT TISSUE NECROSIS [None]
  - WEIGHT DECREASED [None]
